FAERS Safety Report 13293816 (Version 2)
Quarter: 2017Q2

REPORT INFORMATION
  Report Type: Report from Study
  Country: US (occurrence: US)
  Receive Date: 20170303
  Receipt Date: 20170420
  Transmission Date: 20170830
  Serious: Yes (Hospitalization)
  Sender: FDA-Public Use
  Company Number: US-BAYER-2016-207023

PATIENT
  Age: 81 Year
  Sex: Female

DRUGS (2)
  1. NEXAVAR [Suspect]
     Active Substance: SORAFENIB
     Indication: THYROID CANCER
     Dosage: 200 MG, BID
  2. NEXAVAR [Suspect]
     Active Substance: SORAFENIB
     Indication: THYROID CANCER
     Dosage: 200 MG, BID
     Dates: start: 20161019

REACTIONS (6)
  - Skin discolouration [None]
  - Joint swelling [None]
  - Oral pain [None]
  - Hospitalisation [Not Recovered/Not Resolved]
  - Stomatitis [None]
  - Weight decreased [None]

NARRATIVE: CASE EVENT DATE: 201610
